FAERS Safety Report 9604353 (Version 2)
Quarter: 2013Q4

REPORT INFORMATION
  Report Type: Report from Study
  Country: DE (occurrence: DE)
  Receive Date: 20131008
  Receipt Date: 20131008
  Transmission Date: 20140711
  Serious: Yes (Hospitalization, Other)
  Sender: FDA-Public Use
  Company Number: DE-UCBSA-8020546

PATIENT
  Age: 40 Year
  Sex: Male

DRUGS (8)
  1. CDP870 [Suspect]
     Indication: CROHN^S DISEASE
     Dosage: DOSE FREQ.: ONCE MONTHLY
     Route: 058
     Dates: start: 20060606, end: 20061027
  2. AZATHIOPRIN [Concomitant]
     Indication: CROHN^S DISEASE
     Dosage: DOSE FREQ.: DAILY
     Route: 048
  3. PANTOPRAZOL [Concomitant]
     Indication: CROHN^S DISEASE
     Dosage: DOSE FREQ.: DAILY
     Route: 048
  4. EUNOVA FORTE [Concomitant]
     Dosage: DOSE FREQUENCY: 1-0-0
  5. ZINKROTAT 20 [Concomitant]
     Dosage: DOSE FREQUENCY: 1-0-0
  6. IDIOS [Concomitant]
     Dosage: DOSE FREQUENCY: 1-0-0
  7. MGVERLA [Concomitant]
     Dosage: DOSE FREQUENCY: 1-0-0
  8. L-THYROXINE [Concomitant]
     Dosage: DOSE FREQUENCY: 1 1/2-0-0

REACTIONS (1)
  - Small intestine carcinoma [Unknown]
